FAERS Safety Report 9686834 (Version 2)
Quarter: 2013Q4

REPORT INFORMATION
  Report Type: Spontaneous
  Country: IT (occurrence: IT)
  Receive Date: 20131113
  Receipt Date: 20131217
  Transmission Date: 20140711
  Serious: Yes (Other)
  Sender: FDA-Public Use
  Company Number: IT-PFIZER INC-2013322234

PATIENT
  Age: 90 Year
  Sex: Male

DRUGS (2)
  1. BASSADO [Suspect]
     Indication: LOCALISED INFECTION
     Dosage: 2 DF, 1X/DAY
     Route: 048
     Dates: start: 20130924, end: 20130928
  2. AUGMENTIN [Suspect]
     Indication: LOCALISED INFECTION
     Dosage: 2 DF, 1X/DAY
     Route: 048
     Dates: start: 20130920, end: 20130924

REACTIONS (2)
  - Dermatitis bullous [Recovering/Resolving]
  - Drug hypersensitivity [Recovering/Resolving]
